FAERS Safety Report 12416872 (Version 4)
Quarter: 2016Q3

REPORT INFORMATION
  Report Type: Report from Study
  Country: US (occurrence: US)
  Receive Date: 20160530
  Receipt Date: 20160705
  Transmission Date: 20161109
  Serious: Yes (Life-Threatening, Hospitalization, Other)
  Sender: FDA-Public Use
  Company Number: US-AMGEN-USACT2016068533

PATIENT
  Age: 5 Year
  Sex: Female
  Weight: 21 kg

DRUGS (20)
  1. MIRALAX [Concomitant]
     Active Substance: POLYETHYLENE GLYCOL 3350
     Dosage: 4.25 G, UNK
     Route: 048
     Dates: start: 20160510
  2. VINCRISTINE [Suspect]
     Active Substance: VINCRISTINE
     Indication: ACUTE LYMPHOCYTIC LEUKAEMIA
     Dosage: 1.2 MG, UNK
     Route: 065
     Dates: start: 20160518, end: 20160608
  3. POLYSPORIN [Concomitant]
     Active Substance: BACITRACIN ZINC\POLYMYXIN B SULFATE
     Dosage: 10000 UNK, UNK
     Route: 061
     Dates: start: 20160522
  4. CHLORHEXIDINE GLUCONATE. [Concomitant]
     Active Substance: CHLORHEXIDINE GLUCONATE
     Dosage: 1 UNK, UNK
     Route: 061
     Dates: start: 20160510
  5. ZANTAC [Concomitant]
     Active Substance: RANITIDINE HYDROCHLORIDE
     Dosage: 75 MG, UNK
     Route: 048
     Dates: start: 20160509
  6. PEG/L-ASPARAGINASE [Suspect]
     Active Substance: PEGASPARGASE
     Indication: ACUTE LYMPHOCYTIC LEUKAEMIA
     Dosage: 800 UNK, UNK
     Route: 065
     Dates: start: 20160518, end: 20160602
  7. BIOTENE NOS [Concomitant]
     Active Substance: CETYLPYRIDINIUM CHLORIDE OR SODIUM FLUORIDE OR SODIUM MONOFLUOROPHOSPHATE OR GLUCOSE OXIDASE\LACTOFERRIN\LACTOPEROXIDASE BOVINE\LYSOZYME
     Dosage: 5 ML, UNK
     Dates: start: 20160511
  8. DEXAMETHASONE. [Suspect]
     Active Substance: DEXAMETHASONE
     Indication: ACUTE LYMPHOCYTIC LEUKAEMIA
     Dosage: 2.36-8 MG, UNK
     Route: 065
     Dates: start: 20160509, end: 20160603
  9. NEURONTIN [Concomitant]
     Active Substance: GABAPENTIN
     Dosage: 200 MG, UNK
     Route: 048
     Dates: start: 20160509
  10. BACTRIM [Concomitant]
     Active Substance: SULFAMETHOXAZOLE\TRIMETHOPRIM
     Dosage: 56 MG, UNK
     Route: 048
     Dates: start: 20151001
  11. ZOFRAN [Concomitant]
     Active Substance: ONDANSETRON HYDROCHLORIDE
     Dosage: 4 MG, UNK
     Route: 048
     Dates: start: 20160509
  12. LORAZEPAM. [Concomitant]
     Active Substance: LORAZEPAM
     Dosage: 0.5 MG, UNK
     Route: 042
     Dates: start: 20160530, end: 20160609
  13. CARFILZOMIB [Suspect]
     Active Substance: CARFILZOMIB
     Indication: ACUTE LYMPHOCYTIC LEUKAEMIA
     Dosage: 16 MG, PER CHEMO REGIM
     Route: 042
     Dates: start: 20160509
  14. PROPOFOL. [Concomitant]
     Active Substance: PROPOFOL
     Dosage: 10 MG, UNK
     Route: 042
     Dates: start: 20160515, end: 20160515
  15. MITOXANTRONE [Suspect]
     Active Substance: MITOXANTRONE HYDROCHLORIDE
     Indication: ACUTE LYMPHOCYTIC LEUKAEMIA
     Dosage: 8 MG, UNK
     Route: 065
     Dates: start: 20160516, end: 20160517
  16. METHOTREXATE. [Concomitant]
     Active Substance: METHOTREXATE
     Dosage: 12 MG, UNK
     Dates: start: 20160516, end: 20160516
  17. LEVOFLOXACIN. [Concomitant]
     Active Substance: LEVOFLOXACIN
     Dosage: 200 MG, UNK
     Route: 048
     Dates: start: 20160516
  18. ALLOPURINOL. [Concomitant]
     Active Substance: ALLOPURINOL
     Dosage: 100 MG, UNK
     Route: 048
     Dates: start: 20160511, end: 20160519
  19. MICAFUNGIN [Concomitant]
     Active Substance: MICAFUNGIN
     Dosage: 20 MG, UNK
     Route: 042
     Dates: start: 20160511
  20. CYTARABINE. [Concomitant]
     Active Substance: CYTARABINE

REACTIONS (1)
  - Febrile neutropenia [Recovered/Resolved]

NARRATIVE: CASE EVENT DATE: 20160525
